FAERS Safety Report 8860412 (Version 2)
Quarter: 2013Q1

REPORT INFORMATION
  Report Type: Spontaneous
  Country: FR (occurrence: FR)
  Receive Date: 20121025
  Receipt Date: 20130228
  Transmission Date: 20140127
  Serious: Yes (Other)
  Sender: FDA-Public Use
  Company Number: FR-009507513-2012SP027679

PATIENT
  Age: 42 Year
  Sex: Female

DRUGS (1)
  1. ZOELY [Suspect]
     Indication: ORAL CONTRACEPTION
     Dosage: 1 DF, UNK
     Dates: start: 201203, end: 201205

REACTIONS (2)
  - Phlebitis [Unknown]
  - Phlebitis [Unknown]
